FAERS Safety Report 5591340-1 (Version None)
Quarter: 2008Q1

REPORT INFORMATION
  Report Type: 
  Country: None (occurrence: None)
  Receive Date: 20080110
  Receipt Date: 20080110
  Transmission Date: 20080703
  Serious: Yes (Hospitalization)
  Sender: FDA-Public Use
  Company Number: None

PATIENT
  Sex: Male
  Weight: 86.1834 kg

DRUGS (1)
  1. IRESSA [Suspect]
     Indication: NON-SMALL CELL LUNG CANCER
     Dosage: 250MG PO DAILY
     Route: 048
     Dates: start: 20061011

REACTIONS (5)
  - BRADYCARDIA [None]
  - FACIAL BONES FRACTURE [None]
  - FALL [None]
  - JOINT INJURY [None]
  - PRESYNCOPE [None]
